FAERS Safety Report 23268595 (Version 1)
Quarter: 2023Q4

REPORT INFORMATION
  Report Type: Spontaneous
  Country: US (occurrence: US)
  Receive Date: 20231206
  Receipt Date: 20231206
  Transmission Date: 20240110
  Serious: No
  Sender: FDA-Public Use
  Company Number: US-PFIZER INC-202300361690

PATIENT
  Age: 71 Year
  Sex: Female
  Weight: 82.993 kg

DRUGS (3)
  1. PAXLOVID [Suspect]
     Active Substance: NIRMATRELVIR\RITONAVIR
     Indication: COVID-19 treatment
     Dosage: 150MG/100MG, 2X/DAY
     Route: 048
     Dates: start: 20231108, end: 20231113
  2. TYLENOL [Concomitant]
     Active Substance: ACETAMINOPHEN
     Indication: Arthritis
     Dosage: UNK, AS NEEDED
     Route: 048
  3. ADVIL [Concomitant]
     Active Substance: IBUPROFEN
     Indication: Arthritis
     Dosage: UNK, AS NEEDED
     Route: 048

REACTIONS (2)
  - Product label confusion [Unknown]
  - Incorrect dose administered [Unknown]
